FAERS Safety Report 6577703-6 (Version None)
Quarter: 2010Q1

REPORT INFORMATION
  Report Type: 
  Country: None (occurrence: None)
  Receive Date: 20100211
  Receipt Date: 20100208
  Transmission Date: 20100710
  Serious: Yes (Life-Threatening, Hospitalization, Other)
  Sender: FDA-Public Use
  Company Number: PHEH2009US17564

PATIENT
  Sex: Male

DRUGS (2)
  1. EXJADE [Suspect]
     Indication: IRON OVERLOAD
     Dosage: 1750 MG, QD
     Route: 048
  2. DESFERAL [Concomitant]
     Indication: CHELATION THERAPY
     Dosage: UNK
     Route: 042

REACTIONS (1)
  - CARDIAC FAILURE CONGESTIVE [None]
